FAERS Safety Report 7905746-6 (Version None)
Quarter: 2011Q4

REPORT INFORMATION
  Report Type: 
  Country: None (occurrence: None)
  Receive Date: 20111108
  Receipt Date: 20111025
  Transmission Date: 20120403
  Serious: Yes (Hospitalization, Disabling)
  Sender: FDA-Public Use
  Company Number: 1000024473

PATIENT
  Age: 85 Year
  Sex: Male

DRUGS (13)
  1. KMNG NO.3 (CACIUM GLUCONATE, MAGNESIUM CARBONATE, SODIUM CHLORIDE, POT [Concomitant]
  2. GLUCOSE (GLUCOSE) (5 PERCENT) (GLUCOSE) [Concomitant]
  3. MAGMITT (MAGNESIUM OXIDE) (MAGNESIUM OXIDE) [Concomitant]
  4. SEISHOKU (SODIUM CHLORIDE) (SODIUM CHLORIDE) [Concomitant]
  5. MEMANTINE HYDROCHLORIDE [Suspect]
     Indication: DEMENTIA ALZHEIMER'S TYPE
     Dosage: 5 MG (5 MG,1 IN 1 D),ORAL ; 10 MG (10 MG,1 IN 1 D),ORAL
     Route: 048
     Dates: start: 20110819, end: 20110829
  6. MEMANTINE HYDROCHLORIDE [Suspect]
     Indication: DEMENTIA ALZHEIMER'S TYPE
     Dosage: 5 MG (5 MG,1 IN 1 D),ORAL ; 10 MG (10 MG,1 IN 1 D),ORAL
     Route: 048
     Dates: start: 20110830, end: 20110905
  7. GASMOTIN (MOSAPRIDE CITRATE) (MOSAPRIDE CITRATE) [Concomitant]
  8. SENNARIDE (SENNOSIDE A+B) (SENOSIDE A+B) [Concomitant]
  9. MEMANTINE HYDROCHLORIDE [Suspect]
     Indication: DEMENTIA ALZHEIMER'S TYPE
     Dosage: 15 MG (15 MG,1 IN 1 D),ORAL
     Route: 048
     Dates: start: 20110906, end: 20110912
  10. GASCON (DIMETICONE) (DIMETICONE) [Concomitant]
  11. FIRSTCIN (CEFOZOPRAN HYDROCHLORIDE) (CEFOZOPRAN HYDROCHLORIDE) [Concomitant]
  12. BEASLIMIN (LYO-DIAMIN) (LYO-DIAMIN) [Concomitant]
  13. ZOLPIDEM TARTRATE [Suspect]
     Indication: INSOMNIA
     Dosage: 5 MG (5 MG,1 IN 1 D),ORAL
     Route: 048
     Dates: start: 20110817, end: 20110912

REACTIONS (9)
  - HAEMOGLOBIN DECREASED [None]
  - RHABDOMYOLYSIS [None]
  - HAEMATURIA [None]
  - HAEMATOCRIT DECREASED [None]
  - WHITE BLOOD CELL COUNT INCREASED [None]
  - FALL [None]
  - DEPRESSED LEVEL OF CONSCIOUSNESS [None]
  - WHITE BLOOD CELL COUNT DECREASED [None]
  - INTERNATIONAL NORMALISED RATIO DECREASED [None]
